FAERS Safety Report 9069400 (Version 1)
Quarter: 2013Q1

REPORT INFORMATION
  Report Type: Report from Study
  Country: US (occurrence: US)
  Receive Date: 20130131
  Receipt Date: 20130131
  Transmission Date: 20140127
  Serious: No
  Sender: FDA-Public Use
  Company Number: US-ABBOTT-12P-163-0952365-00

PATIENT
  Age: 23 Year
  Sex: Female

DRUGS (6)
  1. HUMIRA [Suspect]
     Indication: CROHN^S DISEASE
     Dates: start: 20120615, end: 20120615
  2. HUMIRA [Suspect]
     Dosage: 80 MILLIGRAMS
  3. HUMIRA [Suspect]
     Dates: end: 20120908
  4. TYLENOL [Concomitant]
     Indication: PAIN
     Dosage: OVER-THE-COUNTER; AS NEEDED
  5. SYMBICORT [Concomitant]
     Indication: ASTHMA
     Route: 055
  6. LEXAPRO [Concomitant]
     Indication: ANXIETY
     Dosage: 10MG DAILY

REACTIONS (4)
  - Abdominal distension [Unknown]
  - Injection site pain [Not Recovered/Not Resolved]
  - Hypersensitivity [Unknown]
  - Headache [Unknown]
